FAERS Safety Report 21612783 (Version 1)
Quarter: 2022Q4

REPORT INFORMATION
  Report Type: Spontaneous
  Country: US (occurrence: US)
  Receive Date: 20221118
  Receipt Date: 20221118
  Transmission Date: 20230113
  Serious: Yes (Other)
  Sender: FDA-Public Use
  Company Number: US-RECKITT BENCKISER HEALTHCARE INT LIMITED-RB-102337-2022

PATIENT
  Sex: Female
  Weight: 72.57 kg

DRUGS (6)
  1. MUCINEX [Interacting]
     Active Substance: GUAIFENESIN
     Indication: Respiratory tract congestion
     Dosage: UNK
     Route: 065
     Dates: start: 20221016, end: 20221019
  2. MUCINEX [Interacting]
     Active Substance: GUAIFENESIN
     Indication: Productive cough
  3. MUCINEX [Interacting]
     Active Substance: GUAIFENESIN
     Indication: Cough
  4. PAXLOVID [Interacting]
     Active Substance: NIRMATRELVIR\RITONAVIR
     Indication: COVID-19
     Dosage: BLUE FOIL PACKET, 6 IN EACH ONE, MORNING DOSE, NIGHT
     Route: 065
     Dates: start: 20221013, end: 20221018
  5. MODERNA COVID-19 VACCINE [Interacting]
     Active Substance: ELASOMERAN
     Indication: Immunisation
     Dosage: BOOSTER
     Route: 065
  6. METHADONE [Suspect]
     Active Substance: METHADONE HYDROCHLORIDE
     Indication: Product used for unknown indication
     Dosage: 48 MILLIGRAM, QD
     Route: 065

REACTIONS (8)
  - Serotonin syndrome [Unknown]
  - Restless legs syndrome [Unknown]
  - Palpitations [Unknown]
  - Hyperhidrosis [Unknown]
  - Cold sweat [Unknown]
  - Chills [Unknown]
  - Fatigue [Unknown]
  - Drug interaction [Unknown]
